FAERS Safety Report 8286306-7 (Version None)
Quarter: 2012Q2

REPORT INFORMATION
  Report Type: 
  Country: None (occurrence: None)
  Receive Date: 20120416
  Receipt Date: 20120411
  Transmission Date: 20120825
  Serious: No
  Sender: FDA-Public Use
  Company Number: US-PFIZER INC-2012090934

PATIENT
  Sex: Female

DRUGS (18)
  1. TRAZODONE [Concomitant]
     Indication: INTERVERTEBRAL DISC PROTRUSION
     Dosage: UNK
  2. FENTANYL [Concomitant]
  3. NEURONTIN [Concomitant]
     Indication: NERVE INJURY
     Dosage: UNK
  4. VICODIN [Concomitant]
  5. ADDERALL 5 [Concomitant]
  6. MOTRIN [Concomitant]
     Indication: POLYARTHRITIS
     Dosage: UNK
  7. KLONOPIN [Concomitant]
  8. FENTANYL [Concomitant]
     Indication: INTERVERTEBRAL DISC PROTRUSION
     Dosage: UNK
  9. LIDODERM [Concomitant]
  10. VICODIN [Concomitant]
     Indication: INTERVERTEBRAL DISC PROTRUSION
     Dosage: UNK
  11. PROTONIX [Suspect]
     Indication: POSTOPERATIVE CARE
     Dosage: 40 MG, 1X/DAY
     Route: 048
     Dates: start: 20080801, end: 20120131
  12. ADDERALL 5 [Concomitant]
     Indication: INTERVERTEBRAL DISC PROTRUSION
     Dosage: UNK
  13. TRAZODONE [Concomitant]
  14. KLONOPIN [Concomitant]
     Indication: INTERVERTEBRAL DISC PROTRUSION
     Dosage: UNK
  15. FLEXERIL [Concomitant]
     Indication: INTERVERTEBRAL DISC PROTRUSION
     Dosage: UNK
  16. LIDODERM [Concomitant]
     Indication: INTERVERTEBRAL DISC PROTRUSION
     Dosage: UNK
  17. CYMBALTA [Concomitant]
     Indication: DEPRESSION
     Dosage: UNK
  18. FLEXERIL [Concomitant]

REACTIONS (1)
  - VOMITING [None]
